FAERS Safety Report 25089843 (Version 4)
Quarter: 2025Q2

REPORT INFORMATION
  Report Type: Spontaneous
  Country: GR (occurrence: GR)
  Receive Date: 20250318
  Receipt Date: 20250522
  Transmission Date: 20250717
  Serious: No
  Sender: PFIZER
  Company Number: GR-PFIZER INC-PV202500030681

PATIENT
  Age: 9 Year
  Sex: Male
  Weight: 27 kg

DRUGS (3)
  1. GENOTROPIN [Suspect]
     Active Substance: SOMATROPIN
     Indication: Hypopituitarism
     Dosage: 5.6 MG, WEEKLY
     Route: 058
     Dates: start: 202401
  2. ARIMIDEX [Concomitant]
     Active Substance: ANASTROZOLE
     Indication: Epiphyses premature fusion
     Dosage: EVERY MORNING
  3. COLECALCIFEROL/MENAQUINONE-7 [Concomitant]
     Indication: Prophylaxis
     Dosage: UNK, 1X/DAY

REACTIONS (2)
  - Device breakage [Recovered/Resolved]
  - Device use error [Recovered/Resolved]

NARRATIVE: CASE EVENT DATE: 20240101
